FAERS Safety Report 12467543 (Version 1)
Quarter: 2016Q2

REPORT INFORMATION
  Report Type: Spontaneous
  Country: US (occurrence: None)
  Receive Date: 20160614
  Receipt Date: 20160614
  Transmission Date: 20160815
  Serious: Yes (Disabling)
  Sender: FDA-Public Use
  Company Number: None

PATIENT
  Sex: Female
  Weight: 68.04 kg

DRUGS (41)
  1. PROZAC [Concomitant]
     Active Substance: FLUOXETINE HYDROCHLORIDE
  2. CELEBREX [Concomitant]
     Active Substance: CELECOXIB
  3. VITAMIN C [Concomitant]
     Active Substance: ASCORBIC ACID
  4. TYLENOL [Suspect]
     Active Substance: ACETAMINOPHEN
     Indication: NARCOLEPSY
     Route: 048
  5. OXYGEN. [Concomitant]
     Active Substance: OXYGEN
  6. CALCIUM [Concomitant]
     Active Substance: CALCIUM
  7. LEVOFLOXACIN. [Suspect]
     Active Substance: LEVOFLOXACIN
     Indication: FIBROMYALGIA
     Route: 048
  8. ZETIA [Concomitant]
     Active Substance: EZETIMIBE
  9. XANAX [Concomitant]
     Active Substance: ALPRAZOLAM
  10. SILICON DIOXIDE [Suspect]
     Active Substance: SILICON DIOXIDE
  11. COLGATE TOOTHPASTE [Suspect]
     Active Substance: SODIUM MONOFLUOROPHOSPHATE
     Indication: PAIN
     Route: 048
  12. COLGATE TOOTHPASTE [Suspect]
     Active Substance: SODIUM MONOFLUOROPHOSPHATE
     Indication: FIBROMYALGIA
     Route: 048
  13. ACETAMINOPHEN\HYDROCODONE BITARTRATE [Suspect]
     Active Substance: ACETAMINOPHEN\HYDROCODONE BITARTRATE
     Indication: NARCOLEPSY
     Route: 048
  14. LEVOFLOXACIN. [Suspect]
     Active Substance: LEVOFLOXACIN
     Indication: PAIN
     Route: 048
  15. RED YEAST RICE [Concomitant]
     Active Substance: DIETARY SUPPLEMENT
  16. PRILOSEC [Concomitant]
     Active Substance: OMEPRAZOLE MAGNESIUM
  17. WOMEN^S MULTIVITAMIN [Concomitant]
  18. COLGATE TOOTHPASTE [Suspect]
     Active Substance: SODIUM MONOFLUOROPHOSPHATE
     Indication: NARCOLEPSY
     Route: 048
  19. ACETAMINOPHEN\HYDROCODONE BITARTRATE [Suspect]
     Active Substance: ACETAMINOPHEN\HYDROCODONE BITARTRATE
     Indication: PAIN
     Route: 048
  20. ACETAMINOPHEN\HYDROCODONE BITARTRATE [Suspect]
     Active Substance: ACETAMINOPHEN\HYDROCODONE BITARTRATE
     Indication: FIBROMYALGIA
     Route: 048
  21. VITAMIN D [Concomitant]
     Active Substance: CHOLECALCIFEROL
  22. ALEVE [Concomitant]
     Active Substance: NAPROXEN SODIUM
  23. TYLENOL [Suspect]
     Active Substance: ACETAMINOPHEN
     Indication: PAIN
     Route: 048
  24. TYLENOL [Suspect]
     Active Substance: ACETAMINOPHEN
     Indication: MALAISE
     Route: 048
  25. TYLENOL [Suspect]
     Active Substance: ACETAMINOPHEN
     Indication: FIBROMYALGIA
     Route: 048
  26. HYALURONIC ACID [Concomitant]
     Active Substance: HYALURONIC ACID
  27. PROVIGIL [Concomitant]
     Active Substance: MODAFINIL
  28. COLGATE TOOTHPASTE [Suspect]
     Active Substance: SODIUM MONOFLUOROPHOSPHATE
     Indication: MALAISE
     Route: 048
  29. ACETAMINOPHEN\HYDROCODONE BITARTRATE [Suspect]
     Active Substance: ACETAMINOPHEN\HYDROCODONE BITARTRATE
     Indication: MALAISE
     Route: 048
  30. LEVOFLOXACIN. [Suspect]
     Active Substance: LEVOFLOXACIN
     Indication: NARCOLEPSY
     Route: 048
  31. CRANBERRY. [Concomitant]
     Active Substance: CRANBERRY
  32. IRON [Concomitant]
     Active Substance: IRON
  33. SPIRIVA INHALER [Concomitant]
  34. LEVOFLOXACIN. [Suspect]
     Active Substance: LEVOFLOXACIN
     Indication: MALAISE
     Route: 048
  35. VITAMIN B COMPLEX [Concomitant]
     Active Substance: CYANOCOBALAMIN\DEXPANTHENOL\NIACINAMIDE\PYRIDOXINE HYDROCHLORIDE\RIBOFLAVIN 5^-PHOSPHATE SODIUM\THIAMINE HYDROCHLORIDE\VITAMIN B COMPLEX
  36. ASPERCREME NOS [Concomitant]
     Active Substance: MENTHOL\TROLAMINE SALICYLATE
  37. SUDAFED [Concomitant]
     Active Substance: PSEUDOEPHEDRINE HYDROCHLORIDE
  38. TITANIUM DIOXIDE [Suspect]
     Active Substance: TITANIUM DIOXIDE
  39. NORVASC [Concomitant]
     Active Substance: AMLODIPINE BESYLATE
  40. NORCO [Concomitant]
     Active Substance: ACETAMINOPHEN\HYDROCODONE BITARTRATE
  41. VIT B-12 [Concomitant]

REACTIONS (8)
  - Fatigue [None]
  - Dyspnoea [None]
  - Tinnitus [None]
  - Erythema [None]
  - Reaction to drug excipients [None]
  - Skin lesion [None]
  - Confusional state [None]
  - Malaise [None]

NARRATIVE: CASE EVENT DATE: 2003
